FAERS Safety Report 7530529-9 (Version None)
Quarter: 2011Q2

REPORT INFORMATION
  Report Type: 
  Country: None (occurrence: None)
  Receive Date: 20110607
  Receipt Date: 20110525
  Transmission Date: 20111010
  Serious: Yes (Hospitalization)
  Sender: FDA-Public Use
  Company Number: JP-TYCO HEALTHCARE/MALLINCKRODT-T201101071

PATIENT
  Sex: Female
  Weight: 49 kg

DRUGS (11)
  1. ZOLPIDEM [Concomitant]
     Dosage: 10 MG AS NEEDED, FROM PREINITIATION OF TRIAL
  2. PREDNISOLONE [Concomitant]
     Dosage: 5 MG, QD
     Dates: start: 20110517
  3. SODIUM CHLORIDE [Concomitant]
     Dosage: 100 ML / 4-6 WEEKS, FROM PREINITIATION OF TRIAL
  4. PRIMPERAN                          /00041901/ [Concomitant]
     Dosage: 15 MG, TID
     Dates: start: 20110517
  5. METHADONE HCL [Suspect]
     Indication: CANCER PAIN
     Dosage: 5 MG, TID
     Route: 048
     Dates: start: 20110420, end: 20110517
  6. FENTANYL [Concomitant]
     Dosage: 6.3 MG / THREE DAYS
     Dates: start: 20110518
  7. OXYCODONE HCL [Concomitant]
     Dosage: 10 MG, PRN, FROM PREINITIATION OF TRIAL
  8. ZOMETA [Concomitant]
     Dosage: 4 MG / 4-6 WEEKS, FROM PREINITIATION OF TRIAL
     Route: 042
  9. DEXART [Concomitant]
     Dosage: 6.6 MG, ONCE/TWO WEEKS
     Route: 042
     Dates: start: 20110412
  10. SODIUM CHLORIDE [Concomitant]
     Dosage: 220 ML, ONCE/TWO WEEKS
     Dates: start: 20110412
  11. GEMZAR [Concomitant]
     Dosage: 1900 MG, ONCE/TWO WEEKS
     Route: 042
     Dates: start: 20110412

REACTIONS (10)
  - ABDOMINAL PAIN UPPER [None]
  - ARTHRALGIA [None]
  - BACK PAIN [None]
  - DISEASE PROGRESSION [None]
  - DYSPNOEA EXERTIONAL [None]
  - PAIN [None]
  - NECK PAIN [None]
  - NAUSEA [None]
  - VOMITING [None]
  - PAIN IN EXTREMITY [None]
